FAERS Safety Report 10929916 (Version 4)
Quarter: 2015Q3

REPORT INFORMATION
  Report Type: Report from Study
  Country: DE (occurrence: CO)
  Receive Date: 20150319
  Receipt Date: 20150817
  Transmission Date: 20151125
  Serious: Yes (Hospitalization, Other)
  Sender: FDA-Public Use
  Company Number: DE-ACTELION-A-NJ2015-114930

PATIENT
  Age: 32 Year
  Sex: Female

DRUGS (10)
  1. VENTAVIS [Suspect]
     Active Substance: ILOPROST
     Indication: PULMONARY HYPERTENSION
     Dosage: 6 DF, QD
     Route: 055
     Dates: start: 20140408
  2. RIOCIGUAT [Suspect]
     Active Substance: RIOCIGUAT
     Dosage: 2.5 MG, BID
     Route: 048
  3. AMBRISENTAN [Concomitant]
     Active Substance: AMBRISENTAN
  4. SILDENAFIL. [Concomitant]
     Active Substance: SILDENAFIL
  5. LITHIUM. [Concomitant]
     Active Substance: LITHIUM
  6. VENTAVIS [Suspect]
     Active Substance: ILOPROST
     Dosage: UNK, QID
     Route: 055
  7. FUROSEMIDE. [Concomitant]
     Active Substance: FUROSEMIDE
  8. RIOCIGUAT [Suspect]
     Active Substance: RIOCIGUAT
     Indication: PRODUCT USED FOR UNKNOWN INDICATION
     Dosage: 1 DF, TID
     Route: 048
     Dates: start: 20150313
  9. RIOCIGUAT [Suspect]
     Active Substance: RIOCIGUAT
     Dosage: 1.0 MG, UNK
     Route: 048
  10. SPIRONOLACTONE. [Concomitant]
     Active Substance: SPIRONOLACTONE

REACTIONS (20)
  - Chikungunya virus infection [Recovered/Resolved]
  - Fear [Unknown]
  - Lung infection [Recovered/Resolved]
  - Pneumonia [Recovered/Resolved]
  - Intentional product misuse [Recovered/Resolved]
  - Hypotension [Not Recovered/Not Resolved]
  - Mood altered [Not Recovered/Not Resolved]
  - Seizure [Recovered/Resolved]
  - Cough [Recovering/Resolving]
  - Vomiting [Recovering/Resolving]
  - Asphyxia [Recovering/Resolving]
  - Gastrointestinal disorder [Recovered/Resolved]
  - Muscle fatigue [Unknown]
  - Erythema [Recovering/Resolving]
  - Drug intolerance [Recovering/Resolving]
  - Diarrhoea [Recovered/Resolved]
  - Vomiting [Recovered/Resolved]
  - Pulmonary arterial pressure increased [Unknown]
  - Off label use [Unknown]
  - Intentional product misuse [Unknown]

NARRATIVE: CASE EVENT DATE: 20150104
